FAERS Safety Report 4337781-1 (Version None)
Quarter: 2004Q2

REPORT INFORMATION
  Report Type: 
  Country: None (occurrence: None)
  Receive Date: 20040413
  Receipt Date: 20030604
  Transmission Date: 20050107
  Serious: Yes (Death)
  Sender: FDA-Public Use
  Company Number: 12296034

PATIENT
  Age: 57 Year

DRUGS (4)
  1. CISPLATIN [Suspect]
     Indication: SMALL CELL CARCINOMA
     Route: 042
  2. ETOPOSIDE [Suspect]
     Indication: SMALL CELL CARCINOMA
     Route: 042
  3. VINCRISTINE SULFATE [Suspect]
     Indication: SMALL CELL CARCINOMA
     Route: 042
  4. ADRIAMYCIN PFS [Suspect]
     Indication: SMALL CELL CARCINOMA
     Route: 042

REACTIONS (4)
  - CARDIAC ARREST [None]
  - METASTASIS [None]
  - RESPIRATORY DISTRESS [None]
  - TUMOUR LYSIS SYNDROME [None]
